FAERS Safety Report 5112915-X (Version None)
Quarter: 2006Q3

REPORT INFORMATION
  Report Type: 
  Country: None (occurrence: None)
  Receive Date: 20060921
  Receipt Date: 20060921
  Transmission Date: 20061208
  Serious: Yes (Other)
  Sender: FDA-Public Use
  Company Number: None

PATIENT
  Age: 69 Year
  Sex: Female
  Weight: 75.7507 kg

DRUGS (6)
  1. LEVAQUIN [Suspect]
     Indication: ASTHMA
     Dosage: 750 MG ONCE DAILY PO
     Route: 048
     Dates: start: 20060811, end: 20060815
  2. LEVAQUIN [Suspect]
     Indication: BRONCHITIS ACUTE
     Dosage: 750 MG ONCE DAILY PO
     Route: 048
     Dates: start: 20060811, end: 20060815
  3. PREDNISONE [Concomitant]
  4. TRICOR [Concomitant]
  5. ALBUTEROL [Concomitant]
  6. ALDACTAZIDE [Concomitant]

REACTIONS (1)
  - TENDON RUPTURE [None]
